FAERS Safety Report 5306318-2 (Version None)
Quarter: 2007Q2

REPORT INFORMATION
  Report Type: 
  Country: None (occurrence: None)
  Receive Date: 20070424
  Receipt Date: 20070419
  Transmission Date: 20071010
  Serious: Yes (Death)
  Sender: FDA-Public Use
  Company Number: GB-ROXANE LABORATORIES, INC-2007-UK-00308UK

PATIENT
  Age: 62 Year
  Sex: Female

DRUGS (2)
  1. ORAMORPH SR [Suspect]
     Indication: LUNG NEOPLASM MALIGNANT
     Dosage: 100MG ADMINISTERED
  2. MORPHINE SULFATE [Suspect]
     Indication: LUNG NEOPLASM MALIGNANT

REACTIONS (2)
  - DRUG ADMINISTRATION ERROR [None]
  - OVERDOSE [None]
